FAERS Safety Report 4789561-0 (Version None)
Quarter: 2005Q4

REPORT INFORMATION
  Report Type: 
  Country: None (occurrence: None)
  Receive Date: 20051006
  Receipt Date: 20050927
  Transmission Date: 20060501
  Serious: Yes (Hospitalization)
  Sender: FDA-Public Use
  Company Number: BR-JNJFOC-20050903522

PATIENT
  Age: 56 Year
  Sex: Female
  Weight: 61 kg

DRUGS (8)
  1. REMICADE [Suspect]
     Route: 042
  2. REMICADE [Suspect]
     Route: 042
  3. REMICADE [Suspect]
     Route: 042
  4. REMICADE [Suspect]
     Indication: DRUG USE FOR UNKNOWN INDICATION
     Route: 042
  5. PREDNISONE [Concomitant]
     Route: 048
  6. NAPROXEN [Concomitant]
     Route: 048
  7. METHOTREXATE [Concomitant]
     Route: 048
  8. RANITIDINE [Concomitant]
     Route: 048

REACTIONS (4)
  - HEMIPLEGIA [None]
  - INFUSION RELATED REACTION [None]
  - PARAESTHESIA [None]
  - POLYNEUROPATHY [None]
